FAERS Safety Report 9021581 (Version 1)
Quarter: 2013Q1

REPORT INFORMATION
  Report Type: Spontaneous
  Country: US (occurrence: US)
  Receive Date: 20130119
  Receipt Date: 20130119
  Transmission Date: 20140127
  Serious: Yes (Death, Other)
  Sender: FDA-Public Use
  Company Number: US-UCBSA-075331

PATIENT
  Age: 57 Year
  Sex: Female

DRUGS (11)
  1. ACETAMINOPHEN\HYDROCODONE [Suspect]
     Route: 048
  2. ATENOLOL [Suspect]
     Route: 048
  3. CITALOPRAM [Suspect]
     Route: 048
  4. OXYCODONE [Suspect]
     Route: 048
  5. HYDROMORPHONE [Suspect]
     Route: 048
  6. CLONAZEPAM [Suspect]
     Route: 048
  7. BROMPHENIRAMINE [Suspect]
     Route: 048
  8. GABAPENTIN [Suspect]
     Route: 048
  9. IBUPROFEN [Suspect]
     Route: 048
  10. ACETAMINOPHEN [Suspect]
     Route: 048
  11. CELECOXIB [Suspect]
     Route: 048

REACTIONS (2)
  - Cardio-respiratory arrest [Fatal]
  - Completed suicide [Fatal]
